FAERS Safety Report 8850531 (Version 1)
Quarter: 2012Q4

REPORT INFORMATION
  Report Type: 
  Country: US (occurrence: US)
  Receive Date: 20121019
  Receipt Date: 20121019
  Transmission Date: 20130627
  Serious: Yes (Other)
  Sender: FDA-Public Use
  Company Number: CHPA2012US021362

PATIENT
  Age: 1 Year
  Sex: Female

DRUGS (2)
  1. EX-LAX REG STR CHOCOLATED LAX PCS SEN [Suspect]
     Dosage: Unk, ONCE/SINGLE
     Route: 048
     Dates: start: 20121008, end: 20121008
  2. ANTIBIOTICS [Concomitant]
     Dosage: Unk, Unk

REACTIONS (3)
  - Blister [Unknown]
  - Accidental overdose [Unknown]
  - Accidental exposure to product by child [Unknown]
